FAERS Safety Report 6010328-X (Version None)
Quarter: 2008Q4

REPORT INFORMATION
  Report Type: 
  Country: None (occurrence: None)
  Receive Date: 20081218
  Receipt Date: 20080722
  Transmission Date: 20090506
  Serious: No
  Sender: FDA-Public Use
  Company Number: A0739940A

PATIENT
  Age: 12 Year
  Sex: Male

DRUGS (1)
  1. FLONASE [Suspect]
     Indication: DRUG USE FOR UNKNOWN INDICATION
     Route: 045
     Dates: start: 20071101

REACTIONS (3)
  - EAR INFECTION [None]
  - SINUS DISORDER [None]
  - SINUSITIS [None]
